FAERS Safety Report 5012132-8 (Version None)
Quarter: 2006Q2

REPORT INFORMATION
  Report Type: 
  Country: None (occurrence: None)
  Receive Date: 20060525
  Receipt Date: 20060525
  Transmission Date: 20061013
  Serious: Yes (Hospitalization)
  Sender: FDA-Public Use
  Company Number: None

PATIENT
  Age: 58 Year
  Sex: 0
  Weight: 101 kg

DRUGS (2)
  1. DILTIAZEM [Suspect]
     Indication: ATRIAL FLUTTER
     Dosage: Q DAY [DOSE INCREASE LAST ON 1-8-06]
     Dates: start: 20060108
  2. METROPROLOL [Concomitant]

REACTIONS (4)
  - DYSPNOEA [None]
  - FATIGUE [None]
  - FEELING ABNORMAL [None]
  - HEART RATE DECREASED [None]
